FAERS Safety Report 9656322 (Version 3)
Quarter: 2013Q4

REPORT INFORMATION
  Report Type: Spontaneous
  Country: US (occurrence: US)
  Receive Date: 20131030
  Receipt Date: 20131114
  Transmission Date: 20140711
  Serious: No
  Sender: FDA-Public Use
  Company Number: US-PFIZER INC-2013309272

PATIENT
  Age: 74 Year
  Sex: Male
  Weight: 61.22 kg

DRUGS (3)
  1. LYRICA [Suspect]
     Indication: SCIATICA
     Dosage: 150 MG (TWO 75MG CAPSULES IN THE MORNING AND TWO 75MG CAPSULES AT NIGHT), 2X/DAY
     Route: 048
     Dates: start: 201308, end: 20131026
  2. TRAMADOL HCL [Suspect]
     Indication: PAIN
     Dosage: 100 MG (TWO 50 MG PILLS IN THE MORNING AND TWO 50 MG PILLS AT NIGHT), 2X/DAY
  3. PROPRANOLOL [Concomitant]
     Indication: HYPERTENSION
     Dosage: UNK

REACTIONS (1)
  - Drug ineffective [Unknown]
